FAERS Safety Report 24018435 (Version 2)
Quarter: 2024Q3

REPORT INFORMATION
  Report Type: Report from Study
  Country: IT (occurrence: IT)
  Receive Date: 20240627
  Receipt Date: 20240713
  Transmission Date: 20241017
  Serious: Yes (Death, Hospitalization, Other)
  Sender: TAKEDA
  Company Number: IT-TAKEDA-2024TUS063853

PATIENT
  Sex: Female

DRUGS (1)
  1. FRUQUINTINIB [Suspect]
     Active Substance: FRUQUINTINIB
     Indication: Adenocarcinoma of colon
     Dosage: UNK
     Route: 065
     Dates: start: 20240520, end: 20240624

REACTIONS (3)
  - Pneumonia [Fatal]
  - Thrombocytopenia [Unknown]
  - Asthenia [Unknown]

NARRATIVE: CASE EVENT DATE: 20240618
